FAERS Safety Report 10584698 (Version 1)
Quarter: 2014Q4

REPORT INFORMATION
  Report Type: Spontaneous
  Country: US (occurrence: None)
  Receive Date: 20141113
  Receipt Date: 20141113
  Transmission Date: 20150529
  Serious: Yes (Other)
  Sender: FDA-Public Use
  Company Number: None

PATIENT
  Age: 49 Year
  Sex: Male

DRUGS (3)
  1. PEGASYS [Concomitant]
     Active Substance: PEGINTERFERON ALFA-2A
  2. SOVALDI [Suspect]
     Active Substance: SOFOSBUVIR
     Indication: HEPATITIS C
     Route: 048
     Dates: start: 20141007, end: 20141112
  3. RIBASPHERE RIBAPAK [Suspect]
     Active Substance: RIBAVIRIN
     Indication: HEPATITIS C
     Dosage: QAM
     Route: 048
     Dates: start: 20141007, end: 20141112

REACTIONS (8)
  - Eye irritation [None]
  - Injection site pruritus [None]
  - Rash macular [None]
  - Insomnia [None]
  - Rash generalised [None]
  - Asthenia [None]
  - Abdominal pain upper [None]
  - Injection site urticaria [None]

NARRATIVE: CASE EVENT DATE: 20141112
